FAERS Safety Report 9658433 (Version 1)
Quarter: 2013Q4

REPORT INFORMATION
  Report Type: Spontaneous
  Country: US (occurrence: US)
  Receive Date: 20131030
  Receipt Date: 20131030
  Transmission Date: 20140711
  Serious: No
  Sender: FDA-Public Use
  Company Number: US-PURDUE-USA-2012-0083777

PATIENT
  Sex: Male

DRUGS (3)
  1. OXYCONTIN (NDA 22-272) [Suspect]
     Indication: BACK PAIN
     Dosage: 20 MG, Q12H
     Route: 048
     Dates: start: 201202
  2. OXYCONTIN (NDA 22-272) [Suspect]
     Dosage: 10 MG, Q12H
     Route: 048
     Dates: start: 201201, end: 201202
  3. OXYCODONE HCL IR CAPSULES [Concomitant]
     Indication: BREAKTHROUGH PAIN
     Dosage: UNK, Q8H AS NEEDED
     Route: 048

REACTIONS (4)
  - Medication residue present [Not Recovered/Not Resolved]
  - Breakthrough pain [Not Recovered/Not Resolved]
  - Inadequate analgesia [Unknown]
  - Drug effect decreased [Not Recovered/Not Resolved]
